FAERS Safety Report 4856187-X (Version None)
Quarter: 2005Q4

REPORT INFORMATION
  Report Type: 
  Country: None (occurrence: None)
  Receive Date: 20051216
  Receipt Date: 20051214
  Transmission Date: 20060501
  Serious: Yes (Hospitalization)
  Sender: FDA-Public Use
  Company Number: AU-MERCK-0512AUS00302

PATIENT
  Age: 71 Year
  Sex: Female

DRUGS (2)
  1. FOSAMAX [Suspect]
     Indication: OSTEOPOROSIS
     Route: 048
     Dates: start: 20030101
  2. FOSAMAX [Suspect]
     Route: 048
     Dates: end: 20030101

REACTIONS (2)
  - GASTROINTESTINAL TRACT ADENOMA [None]
  - IRRITABLE BOWEL SYNDROME [None]
